FAERS Safety Report 14325222 (Version 7)
Quarter: 2018Q1

REPORT INFORMATION
  Report Type: Report from Study
  Country: CN (occurrence: CN)
  Receive Date: 20171226
  Receipt Date: 20180210
  Transmission Date: 20180509
  Serious: Yes (Death, Hospitalization)
  Sender: FDA-Public Use
  Company Number: CN-AMGEN-CHNCT2017142469

PATIENT
  Age: 66 Year
  Sex: Male
  Weight: 75 kg

DRUGS (10)
  1. CARFILZOMIB [Suspect]
     Active Substance: CARFILZOMIB
     Dosage: UNK UNK, PER CHEMO REGIM
     Route: 042
     Dates: start: 20171101
  2. OMEPRAZOLE SODIUM [Concomitant]
     Active Substance: OMEPRAZOLE SODIUM
     Dosage: 40 MG, UNK
     Route: 042
     Dates: start: 20170815, end: 20171031
  3. ACYCLOVIR. [Concomitant]
     Active Substance: ACYCLOVIR
     Dosage: 0.2 G, UNK
     Route: 048
     Dates: start: 20170813
  4. CEFDINIR. [Concomitant]
     Active Substance: CEFDINIR
     Indication: RESPIRATORY TRACT INFECTION
     Dosage: 0.1 G, UNK
     Route: 048
     Dates: start: 20170917, end: 20170917
  5. DEXAMETHASONE. [Suspect]
     Active Substance: DEXAMETHASONE
     Dosage: UNK UNK, PER CHEMO REGIM
     Route: 042
     Dates: start: 20171101
  6. CARFILZOMIB [Suspect]
     Active Substance: CARFILZOMIB
     Indication: PLASMA CELL MYELOMA
     Dosage: 51 MG, PER CHEMO REGIM
     Route: 042
     Dates: start: 20170815, end: 20170913
  7. DEXAMETHASONE. [Suspect]
     Active Substance: DEXAMETHASONE
     Indication: PLASMA CELL MYELOMA
     Dosage: 20 MG, PER CHEMO REGIM
     Route: 042
     Dates: start: 20170815, end: 20170913
  8. LIDOCAINE. [Concomitant]
     Active Substance: LIDOCAINE
     Dosage: 0.1 G, UNK
     Route: 050
     Dates: start: 20170728, end: 20170728
  9. ZOLEDRONIC ACID [Concomitant]
     Active Substance: ZOLEDRONIC ACID
     Dosage: 4 MG, UNK
     Route: 042
     Dates: start: 20170905, end: 20170905
  10. SODIUM CHLORIDE. [Concomitant]
     Active Substance: SODIUM CHLORIDE
     Dosage: 250-500 ML, UNK
     Route: 042
     Dates: start: 20170815, end: 20171120

REACTIONS (3)
  - Lung infection [Fatal]
  - Lung infection [Recovered/Resolved]
  - Lung infection [Recovered/Resolved]

NARRATIVE: CASE EVENT DATE: 20170918
